FAERS Safety Report 8576343-7 (Version None)
Quarter: 2012Q3

REPORT INFORMATION
  Report Type: 
  Country: None (occurrence: None)
  Receive Date: 20120807
  Receipt Date: 20120424
  Transmission Date: 20120928
  Serious: Yes (Other)
  Sender: FDA-Public Use
  Company Number: TR-PFIZER INC-2012101750

PATIENT

DRUGS (1)
  1. VARENICLINE [Suspect]
     Dosage: UNK
     Dates: start: 20120416, end: 20120419

REACTIONS (5)
  - RASH [None]
  - SUICIDAL IDEATION [None]
  - DEPRESSION [None]
  - AFFECTIVE DISORDER [None]
  - LIBIDO DECREASED [None]
